FAERS Safety Report 7987181-8 (Version None)
Quarter: 2011Q4

REPORT INFORMATION
  Report Type: 
  Country: None (occurrence: None)
  Receive Date: 20111216
  Receipt Date: 20111005
  Transmission Date: 20120403
  Serious: No
  Sender: FDA-Public Use
  Company Number: US-BRISTOL-MYERS SQUIBB COMPANY-16135816

PATIENT
  Age: 7 Decade
  Sex: Female

DRUGS (2)
  1. ABILIFY [Suspect]
  2. DEPAKOTE [Suspect]

REACTIONS (1)
  - DYSPHAGIA [None]
